FAERS Safety Report 25549583 (Version 2)
Quarter: 2025Q3

REPORT INFORMATION
  Report Type: Spontaneous
  Country: EU (occurrence: EU)
  Receive Date: 20250714
  Receipt Date: 20250802
  Transmission Date: 20251021
  Serious: Yes (Other)
  Sender: ASCEND THERAPEUTICS US, LLC
  Company Number: EU-Ascend Therapeutics US, LLC-2180459

PATIENT
  Age: 59 Year
  Sex: Female

DRUGS (4)
  1. ESTROGEL [Suspect]
     Active Substance: ESTRADIOL
     Indication: Hyperhidrosis
  2. ESTRADIOL [Suspect]
     Active Substance: ESTRADIOL
  3. MAGNESIUM [Suspect]
     Active Substance: MAGNESIUM
  4. ESTRADIOL [Suspect]
     Active Substance: ESTRADIOL
     Dates: start: 202507

REACTIONS (7)
  - Arrhythmia [Not Recovered/Not Resolved]
  - Product prescribing error [Unknown]
  - Serum ferritin increased [Unknown]
  - Application site acne [Unknown]
  - Restlessness [Not Recovered/Not Resolved]
  - Palpitations [Not Recovered/Not Resolved]
  - Diarrhoea [Unknown]

NARRATIVE: CASE EVENT DATE: 20250101
